FAERS Safety Report 4303385-X (Version None)
Quarter: 2004Q1

REPORT INFORMATION
  Report Type: 
  Country: None (occurrence: None)
  Receive Date: 20040223
  Receipt Date: 20040210
  Transmission Date: 20041129
  Serious: Yes (Hospitalization)
  Sender: FDA-Public Use
  Company Number: 04P-056-0250277-00

PATIENT
  Sex: Male

DRUGS (2)
  1. VALPROATE SODIUM [Suspect]
     Indication: EPILEPSY
     Dosage: 1000 MG, 1 IN 1 D,
  2. TIANEPTINE [Suspect]
     Dosage: PER ORAL
     Route: 048

REACTIONS (6)
  - DIFFICULTY IN WALKING [None]
  - DRUG INTERACTION [None]
  - ENCEPHALOPATHY [None]
  - GENERAL PHYSICAL HEALTH DETERIORATION [None]
  - HYPERAMMONAEMIA [None]
  - SOMNOLENCE [None]
